FAERS Safety Report 9759837 (Version 2)
Quarter: 2014Q1

REPORT INFORMATION
  Report Type: Spontaneous
  Country: US (occurrence: None)
  Receive Date: 20131212
  Receipt Date: 20140107
  Transmission Date: 20141002
  Serious: Yes (Hospitalization)
  Sender: FDA-Public Use
  Company Number: AUR-APL-2013-10392

PATIENT
  Age: 78 Year
  Sex: Male

DRUGS (12)
  1. CEFPODOXIME [Suspect]
     Indication: PRODUCT USED FOR UNKNOWN INDICATION
     Dates: start: 20130904, end: 20131011
  2. TRIATEC [Suspect]
     Indication: HYPERTENSION
     Dates: end: 20131006
  3. PLAVIX [Concomitant]
  4. KARDEGIC (ACETYLSALICYLATE LYSINE) [Concomitant]
  5. BI-TILDIEM LP (DILTIAZEM HYDROCHLORIDE) [Concomitant]
  6. IKOREL (NICORANDIL) [Concomitant]
  7. CRESTOR (ROSUVASTATIN CALCIUM) [Concomitant]
  8. AUGMENTIN [Concomitant]
  9. SEREVENT (SALMETEROL XINAFOATE) [Concomitant]
  10. PULMICORT (BUDESONIDE) [Concomitant]
  11. ZYZALL (LEVOCETIRIZINE DIHYDROCHLORIDE) [Concomitant]
  12. OMEXEL LP (TAMSULOSIN HYDROCHLORIDE) [Concomitant]

REACTIONS (10)
  - Oedema peripheral [None]
  - Haemoglobin decreased [None]
  - Nephritic syndrome [None]
  - Eczema [None]
  - Haematocrit decreased [None]
  - Skin plaque [None]
  - Erythema [None]
  - Pruritus [None]
  - Purulence [None]
  - Eosinophilia [None]
